FAERS Safety Report 23088610 (Version 1)
Quarter: 2023Q4

REPORT INFORMATION
  Report Type: Spontaneous
  Country: US (occurrence: US)
  Receive Date: 20231020
  Receipt Date: 20231020
  Transmission Date: 20240110
  Serious: Yes (Life-Threatening, Hospitalization)
  Sender: FDA-Public Use
  Company Number: US-STRIDES ARCOLAB LIMITED-2023SP015812

PATIENT
  Age: 42 Year
  Sex: Female

DRUGS (1)
  1. AMLODIPINE [Suspect]
     Active Substance: AMLODIPINE BESYLATE
     Indication: Hypertension
     Dosage: 520 MILLIGRAM, INGESTING 52 PILLS OF AMLODIPINE 10MG WITH A DOSE OF 520MG
     Route: 048

REACTIONS (12)
  - Cardiac arrest [Unknown]
  - Distributive shock [Not Recovered/Not Resolved]
  - Hypoxia [Not Recovered/Not Resolved]
  - Tachypnoea [Unknown]
  - Hypokalaemia [Unknown]
  - Lactic acidosis [Unknown]
  - Non-cardiogenic pulmonary oedema [Unknown]
  - Brain injury [Unknown]
  - Suicide attempt [Unknown]
  - Hypotension [Not Recovered/Not Resolved]
  - Toxicity to various agents [Unknown]
  - Intentional overdose [Unknown]
